FAERS Safety Report 13381939 (Version 1)
Quarter: 2017Q1

REPORT INFORMATION
  Report Type: Spontaneous
  Country: None (occurrence: US)
  Receive Date: 20170329
  Receipt Date: 20170329
  Transmission Date: 20170429
  Serious: Yes (Hospitalization)
  Sender: FDA-Public Use
  Company Number: None

PATIENT
  Age: 21 Year
  Sex: Female
  Weight: 104.7 kg

DRUGS (6)
  1. VINCRISTINE SULFATE. [Suspect]
     Active Substance: VINCRISTINE SULFATE
     Dates: end: 20170321
  2. PREDNISONE. [Suspect]
     Active Substance: PREDNISONE
     Dates: end: 20170323
  3. ONCASPAR [Suspect]
     Active Substance: PEGASPARGASE
     Dates: end: 20170317
  4. CYTARABINE. [Suspect]
     Active Substance: CYTARABINE
     Dates: end: 20170314
  5. METHOTREXATE. [Suspect]
     Active Substance: METHOTREXATE
     Dates: end: 20170321
  6. DAUNORUBICIN [Suspect]
     Active Substance: DAUNORUBICIN
     Dates: end: 20170321

REACTIONS (5)
  - Generalised tonic-clonic seizure [None]
  - Transverse sinus thrombosis [None]
  - Headache [None]
  - Cerebral infarction [None]
  - Cerebral haemorrhage [None]

NARRATIVE: CASE EVENT DATE: 20170323
